FAERS Safety Report 23456414 (Version 1)
Quarter: 2024Q1

REPORT INFORMATION
  Report Type: Report from Study
  Country: IN (occurrence: IN)
  Receive Date: 20240130
  Receipt Date: 20240130
  Transmission Date: 20240409
  Serious: Yes (Other)
  Sender: FDA-Public Use
  Company Number: IN-MYLANLABS-2024M1008895

PATIENT
  Age: 46 Year

DRUGS (2)
  1. BENDAMUSTINE HYDROCHLORIDE [Suspect]
     Active Substance: BENDAMUSTINE HYDROCHLORIDE
     Indication: B-cell prolymphocytic leukaemia
     Dosage: 90 MILLIGRAM/SQ. METER, ON DAYS 1-2 OF 28 DAYS BR REGIMEN CHEMOTHERAPY
     Route: 065
  2. RITUXIMAB [Suspect]
     Active Substance: RITUXIMAB
     Indication: B-cell prolymphocytic leukaemia
     Dosage: 375 MILLIGRAM/SQ. METER, INFUSION; ON DAY 1 OF 28 DAYS BR REGIMEN CHEMOTHERAPY
     Route: 065

REACTIONS (2)
  - Disease progression [Unknown]
  - Drug ineffective [Unknown]
